FAERS Safety Report 6053739-9 (Version None)
Quarter: 2009Q1

REPORT INFORMATION
  Report Type: 
  Country: None (occurrence: None)
  Receive Date: 20090127
  Receipt Date: 20080915
  Transmission Date: 20090719
  Serious: Yes (Hospitalization, Other)
  Sender: FDA-Public Use
  Company Number: US-TEVA-177615USA

PATIENT
  Age: 44 Year
  Sex: Female

DRUGS (2)
  1. COPAXONE [Suspect]
     Indication: MULTIPLE SCLEROSIS
     Route: 058
  2. INTERFERON BETA [Suspect]
     Indication: MULTIPLE SCLEROSIS

REACTIONS (3)
  - MULTIPLE SCLEROSIS RELAPSE [None]
  - SKIN NECROSIS [None]
  - STAPHYLOCOCCAL INFECTION [None]
